FAERS Safety Report 13061643 (Version 2)
Quarter: 2018Q4

REPORT INFORMATION
  Report Type: Spontaneous
  Country: US (occurrence: US)
  Receive Date: 20161226
  Receipt Date: 20181217
  Transmission Date: 20190204
  Serious: No
  Sender: FDA-Public Use
  Company Number: US-NOVEN PHARMACEUTICALS, INC.-US2016001984

PATIENT

DRUGS (4)
  1. MINIVELLE [Suspect]
     Active Substance: ESTRADIOL
     Indication: HOT FLUSH
     Dosage: 0.1 MG, UNKNOWN
     Route: 062
     Dates: start: 2015
  2. MINIVELLE [Suspect]
     Active Substance: ESTRADIOL
     Indication: VAGINAL HAEMORRHAGE
     Dosage: 0.075 MG, UNK
     Route: 062
     Dates: start: 201803
  3. MINIVELLE [Suspect]
     Active Substance: ESTRADIOL
     Indication: NIGHT SWEATS
     Dosage: 0.1 MG, UNK
     Route: 062
  4. PROGESTERONE. [Suspect]
     Active Substance: PROGESTERONE
     Indication: PRODUCT USED FOR UNKNOWN INDICATION
     Dosage: 0.1 MG, UNKNOWN
     Route: 065

REACTIONS (7)
  - Dysmenorrhoea [Unknown]
  - Depressed mood [Unknown]
  - Abnormal behaviour [Unknown]
  - Vaginal haemorrhage [Recovered/Resolved]
  - Off label use [Not Recovered/Not Resolved]
  - Product adhesion issue [Not Recovered/Not Resolved]
  - Endometrial thickening [Unknown]

NARRATIVE: CASE EVENT DATE: 2015
